FAERS Safety Report 4430117-7 (Version None)
Quarter: 2004Q3

REPORT INFORMATION
  Report Type: 
  Country: None (occurrence: None)
  Receive Date: 20040820
  Receipt Date: 20040809
  Transmission Date: 20050211
  Serious: Yes (Hospitalization)
  Sender: FDA-Public Use
  Company Number: DE-ROCHE-377427

PATIENT
  Age: 35 Year
  Sex: Male

DRUGS (2)
  1. ROFERON-A [Suspect]
     Route: 058
     Dates: start: 20040802
  2. ACETAMINOPHEN [Concomitant]

REACTIONS (4)
  - ABDOMINAL DISTENSION [None]
  - LIVER FUNCTION TEST ABNORMAL [None]
  - LOSS OF CONSCIOUSNESS [None]
  - NAUSEA [None]
